FAERS Safety Report 9723198 (Version 1)
Quarter: 2013Q4

REPORT INFORMATION
  Report Type: Spontaneous
  Country: US (occurrence: None)
  Receive Date: 20131127
  Receipt Date: 20131127
  Transmission Date: 20140711
  Serious: Yes (Hospitalization)
  Sender: FDA-Public Use
  Company Number: None

PATIENT
  Age: 61 None
  Sex: Female

DRUGS (12)
  1. RISPERDAL [Suspect]
     Indication: DEPRESSION
     Dosage: 1 MG AT FIRST .025 MG 2 PILLS 1 PILL ONCE DAILY BY MOUTH
     Route: 048
     Dates: start: 20070816, end: 20110329
  2. TRIAMTERENE [Concomitant]
  3. POTASSIUM [Concomitant]
  4. SERTRALENE [Concomitant]
  5. SYMBICORT [Concomitant]
  6. PROAIR [Concomitant]
  7. MELOXICAM [Concomitant]
  8. OCCUVITE [Concomitant]
  9. NATURE MADE MULTI 50 + [Concomitant]
  10. CITRACAL [Concomitant]
  11. OSTEOBIFLEX [Concomitant]
  12. TUMS [Concomitant]

REACTIONS (4)
  - Suicidal behaviour [None]
  - Panic reaction [None]
  - Toxicity to various agents [None]
  - Eating disorder [None]
